FAERS Safety Report 13960444 (Version 1)
Quarter: 2017Q3

REPORT INFORMATION
  Report Type: Spontaneous
  Country: US (occurrence: US)
  Receive Date: 20170912
  Receipt Date: 20170912
  Transmission Date: 20171128
  Serious: Yes (Other)
  Sender: FDA-Public Use
  Company Number: None

PATIENT
  Age: 59 Year
  Sex: Female
  Weight: 140 kg

DRUGS (2)
  1. PERFLUTREN [Suspect]
     Active Substance: PERFLUTREN
     Indication: ECHOCARDIOGRAM
     Dosage: ?          OTHER FREQUENCY:ONCE;?
     Route: 040
     Dates: start: 20170822, end: 20170822
  2. PERFLUTREN [Suspect]
     Active Substance: PERFLUTREN
     Indication: PALPITATIONS
     Dosage: ?          OTHER FREQUENCY:ONCE;?
     Route: 040
     Dates: start: 20170822, end: 20170822

REACTIONS (5)
  - Pelvic pain [None]
  - Drug hypersensitivity [None]
  - Back pain [None]
  - Crying [None]
  - Contrast media reaction [None]

NARRATIVE: CASE EVENT DATE: 20170822
